FAERS Safety Report 6517688-1 (Version None)
Quarter: 2009Q4

REPORT INFORMATION
  Report Type: 
  Country: None (occurrence: None)
  Receive Date: 20091224
  Receipt Date: 20091222
  Transmission Date: 20100525
  Serious: Yes (Death)
  Sender: FDA-Public Use
  Company Number: IN-ELI_LILLY_AND_COMPANY-IN200912005104

PATIENT
  Age: 59 Year
  Sex: Male

DRUGS (5)
  1. XIGRIS [Suspect]
     Indication: ABDOMINAL SEPSIS
     Dosage: UNK, UNKNOWN
     Route: 042
     Dates: start: 20091221
  2. NORADRENALINE [Concomitant]
     Indication: HYPOTENSION
     Dosage: UNK, UNKNOWN
     Route: 065
     Dates: start: 20091219
  3. DOPAMINE HCL [Concomitant]
     Indication: HYPOTENSION
     Dosage: UNK, UNKNOWN
     Route: 065
     Dates: start: 20091219
  4. ANTIFUNGALS [Concomitant]
     Dosage: UNK, UNKNOWN
     Route: 065
     Dates: start: 20091221
  5. MEROPENEM [Concomitant]
     Dosage: UNK, UNKNOWN
     Route: 065
     Dates: start: 20091221

REACTIONS (1)
  - HYPOTENSION [None]
